FAERS Safety Report 6472971-3 (Version None)
Quarter: 2009Q4

REPORT INFORMATION
  Report Type: 
  Country: None (occurrence: None)
  Receive Date: 20091204
  Receipt Date: 20091124
  Transmission Date: 20100525
  Serious: Yes (Hospitalization)
  Sender: FDA-Public Use
  Company Number: US-BIOGENIDEC-2009BI005203

PATIENT
  Age: 51 Year
  Sex: Female
  Weight: 77 kg

DRUGS (2)
  1. TYSABRI [Suspect]
     Indication: MULTIPLE SCLEROSIS
     Route: 042
     Dates: start: 20071115
  2. MEDICATIONS (NOS) [Concomitant]
     Indication: CONVULSION

REACTIONS (11)
  - CELLULITIS [None]
  - CELLULITIS ORBITAL [None]
  - CHOKING SENSATION [None]
  - COUGH [None]
  - EYE INFECTION STAPHYLOCOCCAL [None]
  - FATIGUE [None]
  - INFUSION SITE PAIN [None]
  - MEMORY IMPAIRMENT [None]
  - NASOPHARYNGITIS [None]
  - RHINORRHOEA [None]
  - SINUSITIS [None]
